FAERS Safety Report 11482695 (Version 1)
Quarter: 2015Q3

REPORT INFORMATION
  Report Type: Spontaneous
  Country: US (occurrence: None)
  Receive Date: 20150908
  Receipt Date: 20150908
  Transmission Date: 20151125
  Serious: Yes (Life-Threatening, Other)
  Sender: FDA-Public Use
  Company Number: None

PATIENT
  Age: 49 Year
  Sex: Male
  Weight: 79.83 kg

DRUGS (7)
  1. OTELZA [Concomitant]
  2. METFORMIN [Concomitant]
     Active Substance: METFORMIN HYDROCHLORIDE
  3. INVOKANA [Suspect]
     Active Substance: CANAGLIFLOZIN
     Indication: TYPE 2 DIABETES MELLITUS
     Route: 048
     Dates: start: 20141105, end: 20150902
  4. ASPIRIN. [Concomitant]
     Active Substance: ASPIRIN
  5. TYLENOL [Concomitant]
     Active Substance: ACETAMINOPHEN
  6. MOBIC [Concomitant]
     Active Substance: MELOXICAM
  7. BENADRYL [Concomitant]
     Active Substance: DIPHENHYDRAMINE HYDROCHLORIDE

REACTIONS (3)
  - Bladder neoplasm [None]
  - Nephrolithiasis [None]
  - Blood urine present [None]

NARRATIVE: CASE EVENT DATE: 20150901
